FAERS Safety Report 16310757 (Version 2)
Quarter: 2020Q4

REPORT INFORMATION
  Report Type: Spontaneous
  Country: US (occurrence: US)
  Receive Date: 20190514
  Receipt Date: 20201222
  Transmission Date: 20210113
  Serious: Yes (Hospitalization, Other)
  Sender: FDA-Public Use
  Company Number: US-ASTRAZENECA-2019SE67353

PATIENT
  Age: 20199 Day
  Sex: Male
  Weight: 95.3 kg

DRUGS (38)
  1. NEXIUM 24HR [Suspect]
     Active Substance: ESOMEPRAZOLE MAGNESIUM
     Indication: GASTROOESOPHAGEAL REFLUX DISEASE
     Route: 048
     Dates: start: 2014
  2. COLCHICINE PRN/COLCRYS [Concomitant]
     Indication: GOUT
     Dates: start: 2014, end: 2020
  3. TUMS [Concomitant]
     Active Substance: CALCIUM CARBONATE
     Dates: start: 1985, end: 1989
  4. SILDENAFIL. [Concomitant]
     Active Substance: SILDENAFIL
  5. VICODIN [Concomitant]
     Active Substance: ACETAMINOPHEN\HYDROCODONE BITARTRATE
  6. RESTASIS [Concomitant]
     Active Substance: CYCLOSPORINE
  7. PRILOSEC [Suspect]
     Active Substance: OMEPRAZOLE MAGNESIUM
     Route: 048
     Dates: start: 200001, end: 201407
  8. LISINOPRIL. [Concomitant]
     Active Substance: LISINOPRIL
     Indication: HYPERKALAEMIA
     Dates: start: 2014, end: 201810
  9. CARVEDILOL. [Concomitant]
     Active Substance: CARVEDILOL
  10. SODIUM BICARBONATE. [Concomitant]
     Active Substance: SODIUM BICARBONATE
  11. CIPROFLOXACIN. [Concomitant]
     Active Substance: CIPROFLOXACIN
  12. COLCHICINE PRN/COLCRYS [Concomitant]
     Indication: GOUT
     Dates: start: 201901, end: 2020
  13. CALCITRIOL. [Concomitant]
     Active Substance: CALCITRIOL
     Indication: VITAMIN D DEFICIENCY
     Dates: start: 2019, end: 202005
  14. FLUVIRIN NOS [Concomitant]
     Active Substance: INFLUENZA VIRUS VACCINE
  15. AMOXICILLIN. [Concomitant]
     Active Substance: AMOXICILLIN
  16. PRILOSEC OTC [Suspect]
     Active Substance: OMEPRAZOLE MAGNESIUM
     Indication: GASTROOESOPHAGEAL REFLUX DISEASE
     Route: 048
     Dates: start: 2003, end: 20140715
  17. PEPCID/FAMOTIDINE [Concomitant]
     Dates: start: 2014
  18. GENTAMICIN. [Concomitant]
     Active Substance: GENTAMICIN
  19. ACETAMINOPHEN. [Concomitant]
     Active Substance: ACETAMINOPHEN
     Indication: PAIN
     Dates: start: 2014
  20. LATANOPROST. [Concomitant]
     Active Substance: LATANOPROST
  21. LUMIGAN [Concomitant]
     Active Substance: BIMATOPROST
  22. NIFEDIPINE. [Concomitant]
     Active Substance: NIFEDIPINE
  23. VOLTAREN [Concomitant]
     Active Substance: DICLOFENAC SODIUM
     Indication: ARTHRALGIA
     Dates: start: 201710
  24. VITAMIN D [Concomitant]
     Active Substance: VITAMIN D NOS
     Indication: VITAMIN D DEFICIENCY
     Dates: start: 201804
  25. MYLANTA [Concomitant]
     Active Substance: ALUMINUM HYDROXIDE\DIMETHICONE\MAGNESIUM HYDROXIDE
     Dates: start: 1985, end: 1989
  26. ROLAIDS [Concomitant]
     Active Substance: CALCIUM CARBONATE\MAGNESIUM HYDROXIDE
     Dates: start: 1985, end: 1989
  27. PREDNISONE. [Concomitant]
     Active Substance: PREDNISONE
  28. ERYTHROMYCIN. [Concomitant]
     Active Substance: ERYTHROMYCIN
  29. ZYMAR [Concomitant]
     Active Substance: GATIFLOXACIN
  30. PREDNISOLONE. [Concomitant]
     Active Substance: PREDNISOLONE
  31. ROSUVASTATIN. [Concomitant]
     Active Substance: ROSUVASTATIN
     Indication: BLOOD CHOLESTEROL ABNORMAL
     Dates: start: 2019
  32. IBUPROFEN. [Concomitant]
     Active Substance: IBUPROFEN
     Indication: PAIN
     Dates: start: 2006, end: 2014
  33. MAALOX ANTACID [Concomitant]
     Active Substance: ALUMINUM HYDROXIDE\DIMETHICONE\MAGNESIUM HYDROXIDE
     Dates: start: 1985, end: 1989
  34. ALLOPURINOL. [Concomitant]
     Active Substance: ALLOPURINOL
     Indication: GOUT
     Dates: start: 2014
  35. DILTIAZEM. [Concomitant]
     Active Substance: DILTIAZEM
     Indication: BLOOD PRESSURE ABNORMAL
     Dates: start: 2018, end: 202005
  36. NAPROXEN. [Concomitant]
     Active Substance: NAPROXEN
     Indication: PAIN
     Dates: start: 2006, end: 2014
  37. TESTOSTERONE BOOSTER [Concomitant]
     Indication: BLOOD TESTOSTERONE DECREASED
     Dates: start: 2018
  38. VOLTAREN [Concomitant]
     Active Substance: DICLOFENAC SODIUM

REACTIONS (5)
  - End stage renal disease [Not Recovered/Not Resolved]
  - Acute kidney injury [Not Recovered/Not Resolved]
  - Chronic kidney disease [Not Recovered/Not Resolved]
  - Renal tubular injury [Unknown]
  - Renal tubular necrosis [Unknown]

NARRATIVE: CASE EVENT DATE: 20140714
